FAERS Safety Report 10154627 (Version 1)
Quarter: 2014Q2

REPORT INFORMATION
  Report Type: Spontaneous
  Country: FR (occurrence: FR)
  Receive Date: 20140506
  Receipt Date: 20140506
  Transmission Date: 20141212
  Serious: Yes (Death)
  Sender: FDA-Public Use
  Company Number: FR-ORION CORPORATION ORION PHARMA-ENTC2014-0153

PATIENT
  Age: 72 Year
  Sex: Male

DRUGS (6)
  1. STALEVO [Suspect]
     Indication: PARKINSON^S DISEASE
     Dosage: STRENGTH: 50/12.5/200 MG
     Route: 048
     Dates: end: 20140317
  2. REQUIP LP [Interacting]
     Indication: PARKINSON^S DISEASE
     Route: 048
     Dates: start: 200709
  3. REQUIP LP [Interacting]
     Route: 048
     Dates: start: 200902
  4. REQUIP LP [Interacting]
     Route: 048
     Dates: start: 201201, end: 20140215
  5. SINEMET [Interacting]
     Indication: PARKINSON^S DISEASE
     Dosage: STRENGTH: 100/10 MG
     Route: 048
     Dates: end: 20140317
  6. APOKINON [Interacting]
     Indication: PARKINSON^S DISEASE
     Dosage: STRENGTH: 30 MG/3 ML (1%)
     Route: 058
     Dates: start: 201204, end: 20140317

REACTIONS (3)
  - Completed suicide [Fatal]
  - Drug interaction [Unknown]
  - Hypersexuality [Not Recovered/Not Resolved]
